FAERS Safety Report 5198758-X (Version None)
Quarter: 2007Q1

REPORT INFORMATION
  Report Type: 
  Country: None (occurrence: None)
  Receive Date: 20070104
  Receipt Date: 20061227
  Transmission Date: 20070707
  Serious: Yes (Hospitalization)
  Sender: FDA-Public Use
  Company Number: S200600379

PATIENT
  Age: 63 Year
  Sex: Male

DRUGS (4)
  1. SAWACILLIN [Suspect]
     Indication: GASTRIC ULCER HELICOBACTER
     Dosage: 750MG TWICE PER DAY
     Route: 048
     Dates: start: 20050830, end: 20050903
  2. CLARITHROMYCIN [Suspect]
     Indication: GASTRIC ULCER HELICOBACTER
     Dosage: 400MG TWICE PER DAY
     Route: 048
     Dates: start: 20050830, end: 20050903
  3. TAKEPRON [Concomitant]
     Indication: GASTRIC ULCER HELICOBACTER
     Dosage: 30MG TWICE PER DAY
     Route: 048
     Dates: start: 20050830, end: 20050903
  4. BIOFERMIN [Concomitant]
     Indication: GASTRIC ULCER HELICOBACTER
     Dosage: 6MG TWICE PER DAY
     Route: 048
     Dates: start: 20050830, end: 20050903

REACTIONS (6)
  - BACTERIAL INFECTION [None]
  - CANDIDIASIS [None]
  - DIARRHOEA [None]
  - DIARRHOEA HAEMORRHAGIC [None]
  - ENTEROCOLITIS HAEMORRHAGIC [None]
  - KLEBSIELLA INFECTION [None]
